FAERS Safety Report 17198031 (Version 2)
Quarter: 2020Q3

REPORT INFORMATION
  Report Type: Spontaneous
  Country: JP (occurrence: JP)
  Receive Date: 20191225
  Receipt Date: 20200827
  Transmission Date: 20201102
  Serious: Yes (Death, Life-Threatening, Disabling, Other)
  Sender: FDA-Public Use
  Company Number: JP-JAZZ-2019-JP-015267

PATIENT
  Age: 65 Year
  Sex: Female
  Weight: 52.1 kg

DRUGS (2)
  1. DEFITELIO [Suspect]
     Active Substance: DEFIBROTIDE SODIUM
     Indication: VENOOCCLUSIVE LIVER DISEASE
     Dosage: 25 MG/KG/DAY
     Route: 042
     Dates: start: 20191016, end: 20191026
  2. RECOMODULIN [Suspect]
     Active Substance: THROMBOMODULIN ALFA
     Indication: PRODUCT USED FOR UNKNOWN INDICATION
     Dosage: UNKNOWN DOSE
     Route: 065
     Dates: start: 20191016, end: 20191026

REACTIONS (3)
  - Hypotension [Recovered/Resolved]
  - Acute myeloid leukaemia [Fatal]
  - Haematochezia [Recovered/Resolved]

NARRATIVE: CASE EVENT DATE: 20191026
